FAERS Safety Report 24424766 (Version 1)
Quarter: 2024Q4

REPORT INFORMATION
  Report Type: Spontaneous
  Country: US (occurrence: None)
  Receive Date: 20241010
  Receipt Date: 20241010
  Transmission Date: 20250114
  Serious: No
  Sender: Public
  Company Number: None

PATIENT
  Age: 29 Year
  Sex: Female
  Weight: 62.1 kg

DRUGS (8)
  1. VONOPRAZAN [Suspect]
     Active Substance: VONOPRAZAN
     Indication: Erosive oesophagitis
     Dates: start: 20240928, end: 20241009
  2. VONOPRAZAN [Suspect]
     Active Substance: VONOPRAZAN
     Indication: Reflux laryngitis
  3. PROPRANOLOL [Concomitant]
     Active Substance: PROPRANOLOL HYDROCHLORIDE
  4. RITALIN [Concomitant]
     Active Substance: METHYLPHENIDATE HYDROCHLORIDE
  5. VITAMIN D NOS [Concomitant]
     Active Substance: CHOLECALCIFEROL\ERGOCALCIFEROL
  6. UNSPECIFIED INGREDIENT [Concomitant]
     Active Substance: UNSPECIFIED INGREDIENT
  7. PROBIOTICS NOS [Concomitant]
     Active Substance: PROBIOTICS NOS
  8. MAGNESIUM [Concomitant]
     Active Substance: MAGNESIUM

REACTIONS (2)
  - Herpes zoster [None]
  - Oesophageal pain [None]

NARRATIVE: CASE EVENT DATE: 20241008
